FAERS Safety Report 10702581 (Version 3)
Quarter: 2015Q1

REPORT INFORMATION
  Report Type: Spontaneous
  Country: US (occurrence: US)
  Receive Date: 20150109
  Receipt Date: 20150213
  Transmission Date: 20150721
  Serious: Yes (Death, Other)
  Sender: FDA-Public Use
  Company Number: US-009507513-1501USA001577

PATIENT
  Age: 80 Year
  Sex: Female

DRUGS (1)
  1. PEGINTRON [Suspect]
     Active Substance: PEGINTERFERON ALFA-2B
     Indication: NEOPLASM MALIGNANT
     Dosage: REDIPEN  120 MCG, ONCE/WEEK
     Dates: start: 20120305

REACTIONS (2)
  - Aortic dissection [Fatal]
  - Drug administration error [Unknown]

NARRATIVE: CASE EVENT DATE: 20120305
